FAERS Safety Report 9152354 (Version 1)
Quarter: 2013Q1

REPORT INFORMATION
  Report Type: Spontaneous
  Country: US (occurrence: US)
  Receive Date: 20130308
  Receipt Date: 20130308
  Transmission Date: 20140127
  Serious: No
  Sender: FDA-Public Use
  Company Number: US-ENDO PHARMACEUTICALS INC.-OPCR20130006

PATIENT
  Sex: Female

DRUGS (1)
  1. OPANA ER 20MG [Suspect]
     Indication: PAIN
     Dosage: 20 MG
     Route: 048
     Dates: start: 20121204

REACTIONS (2)
  - Migraine [Unknown]
  - Drug effect decreased [Unknown]
